FAERS Safety Report 7985864-7 (Version None)
Quarter: 2011Q4

REPORT INFORMATION
  Report Type: 
  Country: None (occurrence: None)
  Receive Date: 20111214
  Receipt Date: 20111130
  Transmission Date: 20120403
  Serious: Yes (Hospitalization, Other)
  Sender: FDA-Public Use
  Company Number: 2011MA017045

PATIENT
  Age: 61 Year
  Sex: Female
  Weight: 87.5442 kg

DRUGS (33)
  1. HUMULIN R [Concomitant]
  2. IMDUR [Concomitant]
  3. PLAVIX [Concomitant]
  4. PRILOSEC [Concomitant]
  5. RANITIDINE [Concomitant]
  6. DIURETICS [Concomitant]
  7. DILTIAZEM CD [Concomitant]
  8. ISOSORBIDE MONONITRATE [Concomitant]
  9. LASIX [Concomitant]
  10. LIPRAM PN [Concomitant]
  11. TRAMADOL HCL [Concomitant]
  12. MORPHINE [Concomitant]
  13. COUMADIN [Concomitant]
  14. GABAPENTIN [Concomitant]
  15. BLOOD THINNERS [Concomitant]
  16. AMIODARONE [Concomitant]
  17. ASPIRIN [Concomitant]
  18. NIFEDIPINE [Concomitant]
  19. PANCREATIC ENZYME SUPPLEMENT [Concomitant]
  20. CARDIZEM [Concomitant]
  21. DIGOXIN [Suspect]
     Indication: HEART RATE ABNORMAL
     Dosage: 0.5 MG;1X;IV
     Route: 042
     Dates: start: 20071128, end: 20080104
  22. DIGOXIN [Suspect]
     Indication: CARDIOMYOPATHY
     Dosage: 0.5 MG;1X;IV
     Route: 042
     Dates: start: 20071128, end: 20080104
  23. CLONIDINE [Concomitant]
  24. INSULIN [Concomitant]
  25. NEURONTIN [Concomitant]
  26. POTASSIUM CHLORIDE [Concomitant]
  27. ZOLOFT [Concomitant]
  28. CILOSTAZOL [Concomitant]
  29. PANCREASE [Concomitant]
  30. PLETAL [Concomitant]
  31. ATENOLOL [Concomitant]
  32. CATAPRES [Concomitant]
  33. CORDARONE [Concomitant]

REACTIONS (11)
  - CARDIAC FAILURE CONGESTIVE [None]
  - BRADYCARDIA [None]
  - MULTIPLE INJURIES [None]
  - ECONOMIC PROBLEM [None]
  - DECREASED APPETITE [None]
  - RENAL FAILURE [None]
  - PANCREATITIS CHRONIC [None]
  - TOXICITY TO VARIOUS AGENTS [None]
  - DIAPHRAGMATIC HERNIA [None]
  - ATRIAL FIBRILLATION [None]
  - ATRIAL FLUTTER [None]
